FAERS Safety Report 12067159 (Version 1)
Quarter: 2016Q1

REPORT INFORMATION
  Report Type: Spontaneous
  Country: US (occurrence: US)
  Receive Date: 20160210
  Receipt Date: 20160210
  Transmission Date: 20160526
  Serious: No
  Sender: FDA-Public Use
  Company Number: US-JNJFOC-20160106366

PATIENT
  Age: 66 Year
  Sex: Female
  Weight: 88.45 kg

DRUGS (1)
  1. SPORANOX [Suspect]
     Active Substance: ITRACONAZOLE
     Indication: BRONCHITIS
     Route: 048
     Dates: start: 20160105

REACTIONS (4)
  - Headache [Not Recovered/Not Resolved]
  - Off label use [Unknown]
  - Dizziness [Not Recovered/Not Resolved]
  - Product use issue [Unknown]

NARRATIVE: CASE EVENT DATE: 20160109
